FAERS Safety Report 17064047 (Version 1)
Quarter: 2019Q4

REPORT INFORMATION
  Report Type: Spontaneous
  Country: JP (occurrence: JP)
  Receive Date: 20191122
  Receipt Date: 20191122
  Transmission Date: 20200122
  Serious: Yes (Other)
  Sender: FDA-Public Use
  Company Number: JP-PFIZER INC-2018436680

PATIENT
  Age: 57 Year
  Sex: Male

DRUGS (1)
  1. BOSULIF [Suspect]
     Active Substance: BOSUTINIB MONOHYDRATE
     Indication: CHRONIC MYELOID LEUKAEMIA
     Dosage: UNK 300 MG TO 400 MG (INCREASING DOSAGE))
     Route: 048
     Dates: start: 20181003, end: 20190606

REACTIONS (2)
  - Organising pneumonia [Recovering/Resolving]
  - Faeces soft [Recovered/Resolved]

NARRATIVE: CASE EVENT DATE: 20181004
